FAERS Safety Report 25794828 (Version 2)
Quarter: 2025Q4

REPORT INFORMATION
  Report Type: Spontaneous
  Country: US (occurrence: US)
  Receive Date: 20250912
  Receipt Date: 20251111
  Transmission Date: 20260118
  Serious: Yes (Other)
  Sender: APOTEX
  Company Number: US-APOTEX-2025AP029854

PATIENT
  Sex: Male

DRUGS (1)
  1. CARBAMAZEPINE [Suspect]
     Active Substance: CARBAMAZEPINE
     Indication: Seizure
     Dosage: UNK
     Route: 065
     Dates: start: 202311

REACTIONS (3)
  - Seizure [Unknown]
  - Product substitution issue [Unknown]
  - Drug ineffective [Unknown]
